FAERS Safety Report 15903527 (Version 7)
Quarter: 2019Q3

REPORT INFORMATION
  Report Type: Report from Study
  Country: US (occurrence: US)
  Receive Date: 20190203
  Receipt Date: 20190715
  Transmission Date: 20191004
  Serious: Yes (Other)
  Sender: FDA-Public Use
  Company Number: PHEH2019US005124

PATIENT
  Age: 60 Year
  Sex: Female

DRUGS (5)
  1. GILENYA [Suspect]
     Active Substance: FINGOLIMOD HYDROCHLORIDE
     Indication: MULTIPLE SCLEROSIS
     Dosage: 0.5 MG, QD
     Route: 048
     Dates: start: 20190131
  2. GILENYA [Suspect]
     Active Substance: FINGOLIMOD HYDROCHLORIDE
     Dosage: 0.5 MG, QD
     Route: 048
  3. GILENYA [Suspect]
     Active Substance: FINGOLIMOD HYDROCHLORIDE
     Dosage: 0.5 MG, QW5 (5 DAYS/WEEK)
     Route: 048
  4. GILENYA [Suspect]
     Active Substance: FINGOLIMOD HYDROCHLORIDE
     Dosage: 0.5 MG, QW4 (4 DAYS/WEEK)
     Route: 048
  5. GILENYA [Suspect]
     Active Substance: FINGOLIMOD HYDROCHLORIDE
     Dosage: 0.5 MG, QD
     Route: 048

REACTIONS (16)
  - Back pain [Unknown]
  - Underdose [Unknown]
  - Hemiparesis [Unknown]
  - White blood cell count decreased [Not Recovered/Not Resolved]
  - Dizziness [Unknown]
  - Multiple sclerosis relapse [Unknown]
  - Chest pain [Unknown]
  - Blood pressure decreased [Not Recovered/Not Resolved]
  - Concomitant disease aggravated [Unknown]
  - Feeling abnormal [Unknown]
  - Pain in extremity [Unknown]
  - Bradycardia [Not Recovered/Not Resolved]
  - Hypoaesthesia [Unknown]
  - Gait disturbance [Unknown]
  - Secondary progressive multiple sclerosis [Unknown]
  - Alopecia [Unknown]

NARRATIVE: CASE EVENT DATE: 20190131
